FAERS Safety Report 7046115-3 (Version None)
Quarter: 2010Q4

REPORT INFORMATION
  Report Type: 
  Country: None (occurrence: None)
  Receive Date: 20101014
  Receipt Date: 20101005
  Transmission Date: 20110411
  Serious: Yes (Disabling)
  Sender: FDA-Public Use
  Company Number: GB-PFIZER INC-2010126532

PATIENT
  Age: 91 Year
  Sex: Female
  Weight: 58.4 kg

DRUGS (6)
  1. PREGABALIN [Suspect]
     Indication: NEURALGIA
     Dosage: 25 MG, 2X/DAY
     Route: 048
     Dates: start: 20100904, end: 20100910
  2. CARDURA [Concomitant]
     Indication: HYPERTENSION
     Dosage: 6 MG, 1X/DAY
     Route: 048
     Dates: start: 20000101
  3. DEPO-MEDROL [Concomitant]
     Dosage: UNK
  4. IMDUR [Concomitant]
     Indication: ANGINA PECTORIS
     Dosage: 60 MG, 1X/DAY
     Route: 048
     Dates: start: 20000101
  5. LOSARTAN [Concomitant]
     Indication: HYPERTENSION
     Dosage: 100 MG, 1X/DAY
     Route: 048
     Dates: start: 20000101
  6. PLAVIX [Concomitant]
     Indication: CARDIOVASCULAR DISORDER
     Dosage: 75 MG, ONCE EVERY TWO DAYS
     Route: 048
     Dates: start: 20000101

REACTIONS (6)
  - ABDOMINAL DISTENSION [None]
  - ABDOMINAL PAIN [None]
  - BLOOD AMYLASE INCREASED [None]
  - LIVER FUNCTION TEST ABNORMAL [None]
  - PALPITATIONS [None]
  - SMALL INTESTINAL OBSTRUCTION [None]
